FAERS Safety Report 9588991 (Version 1)
Quarter: 2013Q4

REPORT INFORMATION
  Report Type: Spontaneous
  Country: US (occurrence: US)
  Receive Date: 20131003
  Receipt Date: 20131003
  Transmission Date: 20140711
  Serious: No
  Sender: FDA-Public Use
  Company Number: US-AMGEN-USASP2012066857

PATIENT
  Sex: Female
  Weight: 70.3 kg

DRUGS (11)
  1. ENBREL [Suspect]
     Indication: RHEUMATOID ARTHRITIS
     Dosage: 50 MG, QWK
     Route: 058
  2. TREXALL [Concomitant]
     Dosage: 7.5 MG, UNK
  3. LIPITOR [Concomitant]
     Dosage: 20 MG, UNK
  4. KLONOPIN [Concomitant]
     Dosage: 1 MG, UNK
  5. CALCIUM [Concomitant]
     Dosage: 500 UNK, UNK
  6. VITAMIN D                          /00107901/ [Concomitant]
     Dosage: 1000 UNIT
  7. FOLGARD [Concomitant]
     Dosage: UNK
  8. MULTIVITAMIN                       /07504101/ [Concomitant]
     Dosage: UNK
  9. CO Q 10                            /00517201/ [Concomitant]
  10. ASA [Concomitant]
     Dosage: 81 MG, UNK
  11. FISH OIL [Concomitant]
     Dosage: UNK

REACTIONS (2)
  - Rheumatoid arthritis [Unknown]
  - Injection site pain [Unknown]
